FAERS Safety Report 13049466 (Version 2)
Quarter: 2017Q1

REPORT INFORMATION
  Report Type: Spontaneous
  Country: IT (occurrence: IT)
  Receive Date: 20161221
  Receipt Date: 20170118
  Transmission Date: 20170428
  Serious: Yes (Hospitalization)
  Sender: FDA-Public Use
  Company Number: IT-PFIZER INC-2016585809

PATIENT
  Age: 74 Year
  Sex: Male

DRUGS (2)
  1. SUTENT [Suspect]
     Active Substance: SUNITINIB MALATE
     Indication: RECTAL CANCER
     Dosage: 50 MG, DAILY
     Route: 048
     Dates: start: 20160623, end: 20160818
  2. TAREG [Concomitant]
     Active Substance: VALSARTAN

REACTIONS (5)
  - Oropharyngeal pain [Recovering/Resolving]
  - Decreased appetite [Recovering/Resolving]
  - Anorectal discomfort [Recovering/Resolving]
  - Asthenia [Recovering/Resolving]
  - Anaemia [Recovering/Resolving]

NARRATIVE: CASE EVENT DATE: 20160713
